FAERS Safety Report 24650004 (Version 1)
Quarter: 2024Q4

REPORT INFORMATION
  Report Type: Spontaneous
  Country: FR (occurrence: FR)
  Receive Date: 20241122
  Receipt Date: 20241122
  Transmission Date: 20250114
  Serious: Yes (Other)
  Sender: BAXTER
  Company Number: None

PATIENT
  Age: 60 Year
  Sex: Female

DRUGS (1)
  1. DOXORUBICIN [Suspect]
     Active Substance: DOXORUBICIN
     Indication: Neoplasm malignant
     Dosage: UNK, CF. COMMENTS
     Route: 042
     Dates: start: 20241029, end: 20241029

REACTIONS (1)
  - Extravasation [Not Recovered/Not Resolved]

NARRATIVE: CASE EVENT DATE: 20241029
